FAERS Safety Report 14577818 (Version 1)
Quarter: 2018Q1

REPORT INFORMATION
  Report Type: Spontaneous
  Country: US (occurrence: US)
  Receive Date: 20180227
  Receipt Date: 20180227
  Transmission Date: 20180509
  Serious: No
  Sender: FDA-Public Use
  Company Number: US-GLAXOSMITHKLINE-US2018030322

PATIENT
  Sex: Male

DRUGS (1)
  1. SORIATANE [Suspect]
     Active Substance: ACITRETIN
     Indication: MORBIHAN DISEASE
     Dosage: 25 MG, 1D
     Route: 048
     Dates: start: 201712

REACTIONS (2)
  - Labelled drug-drug interaction medication error [Unknown]
  - Product use in unapproved indication [Unknown]
